FAERS Safety Report 9871502 (Version 3)
Quarter: 2014Q3

REPORT INFORMATION
  Report Type: Spontaneous
  Country: US (occurrence: US)
  Receive Date: 20140205
  Receipt Date: 20140723
  Transmission Date: 20150326
  Serious: Yes (Death, Hospitalization, Other)
  Sender: FDA-Public Use
  Company Number: US-CELGENEUS-163-POMAL-14015131

PATIENT
  Age: 65 Year
  Sex: Male

DRUGS (1)
  1. POMALYST [Suspect]
     Active Substance: POMALIDOMIDE
     Indication: PLASMA CELL MYELOMA
     Dosage: 2 MILLIGRAM
     Route: 048
     Dates: start: 20130921, end: 20140129

REACTIONS (4)
  - Haematochezia [Unknown]
  - Plasma cell myeloma [Fatal]
  - Pleural effusion [Unknown]
  - Pain [Unknown]

NARRATIVE: CASE EVENT DATE: 20140129
